FAERS Safety Report 15814255 (Version 1)
Quarter: 2019Q1

REPORT INFORMATION
  Report Type: Spontaneous
  Country: US (occurrence: US)
  Receive Date: 20190111
  Receipt Date: 20190111
  Transmission Date: 20190417
  Serious: Yes (Other)
  Sender: FDA-Public Use
  Company Number: US-JAZZ-2018-US-016995

PATIENT
  Age: 58 Year
  Sex: Female

DRUGS (3)
  1. PRIALT [Suspect]
     Active Substance: ZICONOTIDE ACETATE
     Indication: PAIN
     Dosage: BOLUS DOSE
     Dates: start: 201806
  2. PRIALT [Suspect]
     Active Substance: ZICONOTIDE ACETATE
     Dosage: 0.062 ?G, QH
     Route: 037
     Dates: start: 20181004, end: 20181023
  3. PRIALT [Suspect]
     Active Substance: ZICONOTIDE ACETATE
     Dosage: UNK ?G, UNK
     Route: 037
     Dates: start: 20181031, end: 20181110

REACTIONS (7)
  - Hallucination, visual [Recovered/Resolved]
  - Off label use [Unknown]
  - Psychiatric symptom [Recovered/Resolved]
  - Muscle spasms [Recovered/Resolved]
  - Hallucination, auditory [Recovered/Resolved]
  - Rash [Unknown]
  - Dyspnoea [Unknown]

NARRATIVE: CASE EVENT DATE: 201806
